FAERS Safety Report 8364594-6 (Version None)
Quarter: 2012Q2

REPORT INFORMATION
  Report Type: 
  Country: None (occurrence: None)
  Receive Date: 20120516
  Receipt Date: 20120507
  Transmission Date: 20120825
  Serious: Yes (Other)
  Sender: FDA-Public Use
  Company Number: ES-ROCHE-1059023

PATIENT
  Age: 68 Year
  Sex: Female

DRUGS (7)
  1. ACTEMRA [Suspect]
     Route: 042
     Dates: start: 20120103
  2. CALCIUM CARBONATE/VITAMIN D NOS [Concomitant]
     Indication: OSTEOPOROSIS
  3. CALCITONINE [Concomitant]
     Indication: OSTEOPOROSIS
  4. MORPHINE [Concomitant]
     Indication: SPINAL PAIN
  5. ACTEMRA [Suspect]
     Indication: FIBROSIS
     Route: 042
     Dates: start: 20111104
  6. ENALAPRIL MALEATE [Suspect]
     Indication: HYPERTENSION
     Dates: start: 20120101
  7. FUROSEMIDE [Concomitant]
     Indication: HYPERTENSION

REACTIONS (4)
  - NEUTROPENIA [None]
  - BLOOD CREATININE INCREASED [None]
  - RENAL IMPAIRMENT [None]
  - BLOOD UREA INCREASED [None]
